FAERS Safety Report 8136620-0 (Version None)
Quarter: 2012Q1

REPORT INFORMATION
  Report Type: 
  Country: None (occurrence: None)
  Receive Date: 20120214
  Receipt Date: 20120201
  Transmission Date: 20120608
  Serious: Yes (Other)
  Sender: FDA-Public Use
  Company Number: GB-ELI_LILLY_AND_COMPANY-GB201202000264

PATIENT
  Age: 33 Year
  Sex: Male

DRUGS (3)
  1. XEPLION                            /05724801/ [Concomitant]
     Indication: SCHIZOPHRENIA, PARANOID TYPE
     Dosage: 100 MG, EVERY MONTH
     Route: 030
  2. OLANZAPINE [Suspect]
     Dosage: UNK, UNKNOWN
  3. RISPERDAL CONSTA [Concomitant]
     Indication: SCHIZOPHRENIA, PARANOID TYPE
     Dosage: UNK, UNKNOWN
     Route: 030

REACTIONS (5)
  - HYPERHIDROSIS [None]
  - PANIC ATTACK [None]
  - DYSPNOEA [None]
  - MUSCULOSKELETAL STIFFNESS [None]
  - TACHYCARDIA [None]
